FAERS Safety Report 8618131-9 (Version None)
Quarter: 2012Q3

REPORT INFORMATION
  Report Type: 
  Country: None (occurrence: None)
  Receive Date: 20120824
  Receipt Date: 20120104
  Transmission Date: 20120928
  Serious: Yes (Other)
  Sender: FDA-Public Use
  Company Number: US-ASTRAZENECA-2010SE41952

PATIENT
  Age: 61 Year
  Sex: Male

DRUGS (3)
  1. SYMBICORT [Suspect]
     Dosage: ONE PUFF 160/4.5MCG BID
     Route: 055
  2. SYMBICORT [Suspect]
     Indication: ASTHMA
     Dosage: 160/4.5 MCG, TWO PUFFS BID
     Route: 055
     Dates: start: 20100101, end: 20100101
  3. SYMBICORT [Suspect]
     Dosage: TWO PUFF BID
     Route: 055

REACTIONS (2)
  - WEIGHT INCREASED [None]
  - SUPRAVENTRICULAR TACHYCARDIA [None]
